FAERS Safety Report 13301232 (Version 3)
Quarter: 2017Q3

REPORT INFORMATION
  Report Type: Spontaneous
  Country: US (occurrence: US)
  Receive Date: 20170307
  Receipt Date: 20170915
  Transmission Date: 20171127
  Serious: No
  Sender: FDA-Public Use
  Company Number: US-PFIZER INC-2017058498

PATIENT
  Age: 66 Year
  Sex: Male
  Weight: 126.98 kg

DRUGS (5)
  1. LYRICA [Suspect]
     Active Substance: PREGABALIN
     Indication: LUMBAR RADICULOPATHY
     Dosage: 150 MG, 2X/DAY
     Route: 048
  2. LYRICA [Suspect]
     Active Substance: PREGABALIN
     Indication: HYPOAESTHESIA
     Dosage: 75 MG, 2X/DAY
     Route: 048
     Dates: start: 2016
  3. TRAMADOL. [Concomitant]
     Active Substance: TRAMADOL
     Indication: PAIN
     Dosage: UNK
  4. ALEVE [Concomitant]
     Active Substance: NAPROXEN SODIUM
     Dosage: UNK
  5. ULTRAM [Concomitant]
     Active Substance: TRAMADOL HYDROCHLORIDE
     Dosage: 50 MG, AS NEEDED (Q4-6 HOURS)
     Route: 048

REACTIONS (4)
  - Drug ineffective [Unknown]
  - Peripheral swelling [Unknown]
  - Pain [Not Recovered/Not Resolved]
  - Burning sensation [Not Recovered/Not Resolved]

NARRATIVE: CASE EVENT DATE: 20170205
